APPROVED DRUG PRODUCT: BENAZEPRIL HYDROCHLORIDE AND HYDROCHLOROTHIAZIDE
Active Ingredient: BENAZEPRIL HYDROCHLORIDE; HYDROCHLOROTHIAZIDE
Strength: 10MG;12.5MG
Dosage Form/Route: TABLET;ORAL
Application: A076631 | Product #002 | TE Code: AB
Applicant: SANDOZ INC
Approved: Feb 11, 2004 | RLD: No | RS: No | Type: RX